FAERS Safety Report 12191879 (Version 22)
Quarter: 2018Q2

REPORT INFORMATION
  Report Type: Spontaneous
  Country: US (occurrence: US)
  Receive Date: 20160318
  Receipt Date: 20180521
  Transmission Date: 20180711
  Serious: Yes (Other)
  Sender: FDA-Public Use
  Company Number: US-PFIZER INC-2016139210

PATIENT
  Age: 74 Year
  Sex: Female
  Weight: 64 kg

DRUGS (16)
  1. IBRANCE [Suspect]
     Active Substance: PALBOCICLIB
     Indication: BREAST CANCER METASTATIC
     Dosage: 125 MG, CYCLIC (DAY 1-DAY 21 EVERY 28 DAYS)
     Route: 048
     Dates: start: 20150111
  2. FASLODEX [Suspect]
     Active Substance: FULVESTRANT
     Indication: BREAST CANCER METASTATIC
     Dosage: UNK
  3. IBRANCE [Suspect]
     Active Substance: PALBOCICLIB
     Dosage: 125 MG, CYCLIC (DAY 1-21 Q 28 DAYS)
     Route: 048
  4. IBRANCE [Suspect]
     Active Substance: PALBOCICLIB
     Dosage: UNK
  5. IBRANCE [Suspect]
     Active Substance: PALBOCICLIB
     Dosage: 100 MG, CYCLIC (DAYS 1-21 Q28 DAYS)
     Route: 048
     Dates: start: 20151111
  6. IBRANCE [Suspect]
     Active Substance: PALBOCICLIB
     Dosage: 100 MG, CYCLIC (DAYS 1-21 Q28 DAYS)
     Route: 048
     Dates: start: 20151111
  7. IBRANCE [Suspect]
     Active Substance: PALBOCICLIB
     Dosage: 125 MG, CYCLIC(DAY 1-21 Q 28 DAYS)
     Route: 048
     Dates: start: 20151111
  8. IBRANCE [Suspect]
     Active Substance: PALBOCICLIB
     Dosage: 125 MG, CYCLIC [DAY 1-21 Q 28 DAYS]
     Route: 048
  9. IBRANCE [Suspect]
     Active Substance: PALBOCICLIB
     Dosage: 100 MG, CYCLIC (DAYS 1-21 Q28 DAYS)
     Route: 048
     Dates: start: 20151111
  10. IBRANCE [Suspect]
     Active Substance: PALBOCICLIB
     Dosage: UNK
  11. IBRANCE [Suspect]
     Active Substance: PALBOCICLIB
     Dosage: 125 MG, CYCLIC [DAY 1-21 Q 28 DAYS]
     Route: 048
  12. IBRANCE [Suspect]
     Active Substance: PALBOCICLIB
     Dosage: 100 MG, CYCLIC (DAYS 1-21 Q28 DAYS)
     Route: 048
     Dates: start: 20151111
  13. IBRANCE [Suspect]
     Active Substance: PALBOCICLIB
     Dosage: UNK
  14. IBRANCE [Suspect]
     Active Substance: PALBOCICLIB
     Dosage: 125 MG, CYCLIC (DAY 1-21 Q 28 DAYS)
     Route: 048
  15. IBRANCE [Suspect]
     Active Substance: PALBOCICLIB
     Dosage: 125 MG, CYCLIC (D1-21-Q28D)
     Route: 048
  16. IBRANCE [Suspect]
     Active Substance: PALBOCICLIB
     Dosage: 100 MG, CYCLIC, (D1-21 Q28 DAYS)
     Route: 048
     Dates: start: 20170626

REACTIONS (33)
  - Neutropenia [Unknown]
  - Panic attack [Unknown]
  - Weight increased [Unknown]
  - Gingival disorder [Not Recovered/Not Resolved]
  - Fatigue [Unknown]
  - Alopecia [Unknown]
  - Anxiety [Unknown]
  - Flatulence [Unknown]
  - Hypersensitivity [Unknown]
  - Oropharyngeal pain [Unknown]
  - Gait disturbance [Unknown]
  - Kidney infection [Unknown]
  - Muscle spasms [Unknown]
  - Increased appetite [Unknown]
  - Mouth ulceration [Not Recovered/Not Resolved]
  - Poor quality sleep [Unknown]
  - Pain [Unknown]
  - Skin cancer [Unknown]
  - Dysuria [Unknown]
  - Nasal disorder [Unknown]
  - Back pain [Unknown]
  - White blood cell count decreased [Recovering/Resolving]
  - Back injury [Unknown]
  - Anaemia [Unknown]
  - Asthenia [Unknown]
  - Second primary malignancy [Unknown]
  - Stomatitis [Unknown]
  - Peripheral coldness [Unknown]
  - Rash pruritic [Unknown]
  - Laceration [Unknown]
  - Urinary tract infection [Unknown]
  - Injection site mass [Unknown]
  - Back disorder [Unknown]

NARRATIVE: CASE EVENT DATE: 20160617
